FAERS Safety Report 10302708 (Version 1)
Quarter: 2014Q3

REPORT INFORMATION
  Report Type: Spontaneous
  Country: US (occurrence: US)
  Receive Date: 20140714
  Receipt Date: 20140714
  Transmission Date: 20150326
  Serious: No
  Sender: FDA-Public Use
  Company Number: US-BAUSCH-BL-2013-003562

PATIENT
  Age: 84 Year
  Sex: Male

DRUGS (4)
  1. BESIVANCE [Suspect]
     Active Substance: BESIFLOXACIN
     Indication: POSTOPERATIVE CARE
     Dosage: 1 DROP IN RIGHT EYE, 2-3 TIMES PER DAY
     Route: 047
     Dates: start: 201304, end: 201304
  2. NEVANAC [Concomitant]
     Active Substance: NEPAFENAC
  3. COUMADIN [Concomitant]
     Active Substance: WARFARIN SODIUM
  4. PREDNISOLONE EYE DROPS [Concomitant]

REACTIONS (2)
  - Epistaxis [Recovered/Resolved]
  - Off label use [Recovered/Resolved]

NARRATIVE: CASE EVENT DATE: 201304
